FAERS Safety Report 23055484 (Version 6)
Quarter: 2024Q3

REPORT INFORMATION
  Report Type: Report from Study
  Country: CA (occurrence: CA)
  Receive Date: 20231011
  Receipt Date: 20240703
  Transmission Date: 20241016
  Serious: Yes (Other)
  Sender: OTSUKA
  Company Number: CA-OTSUKA-2023_026277

PATIENT
  Age: 74 Year
  Sex: Male

DRUGS (2)
  1. CEDAZURIDINE\DECITABINE [Suspect]
     Active Substance: CEDAZURIDINE\DECITABINE
     Indication: Myelodysplastic syndrome
     Dosage: 5 DF (35 MG DECITABINE AND 100 MG CEDAZURIDINE), PER 28-DAYS CYCLE (3 X CYCLES)
     Route: 065
     Dates: start: 20230623
  2. ONDANSETRON [Concomitant]
     Active Substance: ONDANSETRON
     Indication: Nausea
     Dosage: 4-8 MG PRN (AS NECESSARY)
     Route: 065

REACTIONS (5)
  - Full blood count abnormal [Recovered/Resolved]
  - Thrombocytopenia [Recovered/Resolved]
  - Peripheral swelling [Unknown]
  - Abdominal discomfort [Unknown]
  - Therapy interrupted [Unknown]

NARRATIVE: CASE EVENT DATE: 20230829
